FAERS Safety Report 12119010 (Version 1)
Quarter: 2016Q1

REPORT INFORMATION
  Report Type: Spontaneous
  Country: US (occurrence: None)
  Receive Date: 20160225
  Receipt Date: 20160225
  Transmission Date: 20160526
  Serious: No
  Sender: FDA-Public Use
  Company Number: None

PATIENT
  Sex: Female

DRUGS (12)
  1. LISINOPRIL. [Concomitant]
     Active Substance: LISINOPRIL
  2. SALSALATE. [Concomitant]
     Active Substance: SALSALATE
  3. CYCLOBENZAPRINE [Concomitant]
     Active Substance: CYCLOBENZAPRINE
  4. SERTRALINE [Concomitant]
     Active Substance: SERTRALINE HYDROCHLORIDE
  5. FOLIC ACID. [Concomitant]
     Active Substance: FOLIC ACID
  6. TRAMADOL. [Concomitant]
     Active Substance: TRAMADOL
  7. HCTZ [Concomitant]
     Active Substance: HYDROCHLOROTHIAZIDE
  8. ENBREL [Suspect]
     Active Substance: ETANERCEPT
     Indication: RHEUMATOID ARTHRITIS
     Route: 058
     Dates: start: 20130123
  9. PREDNISONE. [Concomitant]
     Active Substance: PREDNISONE
  10. METHOTREXATE [Concomitant]
     Active Substance: METHOTREXATE
  11. POT CHLOR [Concomitant]
  12. FINACEA [Concomitant]
     Active Substance: AZELAIC ACID

REACTIONS (1)
  - Condition aggravated [None]

NARRATIVE: CASE EVENT DATE: 2016
